FAERS Safety Report 4392678-6 (Version None)
Quarter: 2004Q3

REPORT INFORMATION
  Report Type: 
  Country: None (occurrence: None)
  Receive Date: 20040708
  Receipt Date: 20040322
  Transmission Date: 20050211
  Serious: Yes (Hospitalization, Disabling)
  Sender: FDA-Public Use
  Company Number: PHBS2004JP04100

PATIENT
  Age: 59 Year
  Sex: Female
  Weight: 53 kg

DRUGS (5)
  1. LOCHOL [Suspect]
     Indication: HYPERCHOLESTEROLAEMIA
     Dosage: 20 MG/DAY
     Route: 048
     Dates: start: 20010406
  2. DILTIAZEM HYDROCHLORIDE [Concomitant]
     Indication: PRINZMETAL ANGINA
     Dosage: 30 MG/DAY
     Route: 048
     Dates: start: 19961007
  3. SELBEX [Concomitant]
     Indication: GASTRITIS
     Dosage: 50 MG/DAY
     Route: 048
     Dates: start: 19961007
  4. MARZULENE S [Concomitant]
     Indication: GASTRITIS
     Dosage: 2 MG/DAY
     Route: 048
     Dates: start: 19961007
  5. LOCHOL [Suspect]
     Dosage: 20 MG/DAY
     Route: 048
     Dates: end: 20040322

REACTIONS (11)
  - BLINDNESS [None]
  - EYE DISORDER [None]
  - EYE INFLAMMATION [None]
  - EYE PAIN [None]
  - RETINAL DETACHMENT [None]
  - SURGERY [None]
  - UVEITIS [None]
  - VISION BLURRED [None]
  - VISUAL ACUITY REDUCED [None]
  - VISUAL DISTURBANCE [None]
  - VITREOUS OPACITIES [None]
